FAERS Safety Report 26134607 (Version 1)
Quarter: 2025Q4

REPORT INFORMATION
  Report Type: Spontaneous
  Country: EU (occurrence: EU)
  Receive Date: 20251209
  Receipt Date: 20251209
  Transmission Date: 20260118
  Serious: Yes (Death)
  Sender: NOVARTIS
  Company Number: EU-ITM MEDICAL ISOTOPES GMBH-ITMBE2025000437

PATIENT
  Age: 69 Year
  Sex: Female

DRUGS (2)
  1. LUTETIUM OXODOTREOTIDE LU-177 [Suspect]
     Active Substance: LUTETIUM OXODOTREOTIDE LU-177
     Indication: Lung cancer metastatic
     Dosage: UNK (CYCLE #1 OF [177LU]LU-DOTA-TATE)
     Route: 065
  2. LUTETIUM CHLORIDE LU-177 [Suspect]
     Active Substance: LUTETIUM CHLORIDE LU-177
     Indication: Radioisotope therapy
     Dosage: UNK (CYCLE #1 OF [177LU]LU-DOTA-TATE)
     Route: 065

REACTIONS (1)
  - Tumour lysis syndrome [Fatal]
